FAERS Safety Report 17898665 (Version 4)
Quarter: 2020Q4

REPORT INFORMATION
  Report Type: Other
  Country: CA (occurrence: CA)
  Receive Date: 20200616
  Receipt Date: 20201001
  Transmission Date: 20210113
  Serious: Yes (Other)
  Sender: FDA-Public Use
  Company Number: CA-ROCHE-2553455

PATIENT
  Sex: Male

DRUGS (1)
  1. OCREVUS [Suspect]
     Active Substance: OCRELIZUMAB
     Indication: RELAPSING-REMITTING MULTIPLE SCLEROSIS
     Dosage: 300 MG AT DAY 0 AND 14, THEN 600 MG EVERY 6 MONTH
     Route: 042
     Dates: start: 20190918

REACTIONS (10)
  - Eye disorder [Not Recovered/Not Resolved]
  - Influenza [Unknown]
  - Hypersomnia [Recovered/Resolved]
  - Multiple sclerosis relapse [Not Recovered/Not Resolved]
  - Anxiety [Recovered/Resolved]
  - Chest pain [Unknown]
  - Monoplegia [Recovered/Resolved]
  - Hypoaesthesia [Unknown]
  - Illness [Recovered/Resolved]
  - Muscle rigidity [Not Recovered/Not Resolved]
